FAERS Safety Report 18312780 (Version 1)
Quarter: 2020Q3

REPORT INFORMATION
  Report Type: Spontaneous
  Country: FR (occurrence: FR)
  Receive Date: 20200925
  Receipt Date: 20200925
  Transmission Date: 20201103
  Serious: Yes (Death)
  Sender: FDA-Public Use
  Company Number: FR-TEVA-2020-FR-1830318

PATIENT
  Age: 41 Year
  Sex: Female
  Weight: 40 kg

DRUGS (3)
  1. IRINOTECAN [Suspect]
     Active Substance: IRINOTECAN
     Indication: ADENOCARCINOMA
     Dosage: UNIT DOSE 128 MG
     Route: 042
     Dates: start: 20191126, end: 20200811
  2. FLUOROURACILE [Suspect]
     Active Substance: FLUOROURACIL
     Indication: ADENOCARCINOMA
     Dosage: UNIT DOSE 3450MG
     Route: 041
     Dates: start: 20191126, end: 20200811
  3. ZALTRAP [Suspect]
     Active Substance: ZIV-AFLIBERCEPT
     Indication: ADENOCARCINOMA
     Dosage: UNIT DOSE 160MG
     Route: 042
     Dates: start: 20200811, end: 20200811

REACTIONS (1)
  - Cardiac failure [Fatal]

NARRATIVE: CASE EVENT DATE: 202008
